FAERS Safety Report 23143688 (Version 1)
Quarter: 2023Q4

REPORT INFORMATION
  Report Type: Other
  Country: JP (occurrence: None)
  Receive Date: 20231103
  Receipt Date: 20231103
  Transmission Date: 20240109
  Serious: Yes (Other)
  Sender: FDA-Public Use
  Company Number: JP-ROCHE-3447806

PATIENT
  Age: 69 Year
  Sex: Male

DRUGS (5)
  1. BEVACIZUMAB [Suspect]
     Active Substance: BEVACIZUMAB
     Indication: Hepatic cancer stage III
     Route: 065
  2. ATEZOLIZUMAB [Suspect]
     Active Substance: ATEZOLIZUMAB
     Indication: Hepatic cancer stage III
     Route: 065
  3. DURVALUMAB [Concomitant]
     Active Substance: DURVALUMAB
     Indication: Hepatic cancer metastatic
     Dosage: 1500 MG/BODY
  4. TREMELIMUMAB [Concomitant]
     Active Substance: TREMELIMUMAB
     Indication: Hepatic cancer metastatic
     Dosage: 300 MG/BODY
  5. EPIRUBICIN [Concomitant]
     Active Substance: EPIRUBICIN

REACTIONS (2)
  - Disease progression [Recovering/Resolving]
  - Fluid retention [Recovering/Resolving]
